FAERS Safety Report 21285577 (Version 1)
Quarter: 2022Q3

REPORT INFORMATION
  Report Type: Spontaneous
  Country: US (occurrence: None)
  Receive Date: 20220901
  Receipt Date: 20220901
  Transmission Date: 20221027
  Serious: Yes (Other)
  Sender: FDA-Public Use
  Company Number: None

PATIENT
  Age: 69 Year
  Sex: Male

DRUGS (2)
  1. TACROLIMUS [Suspect]
     Active Substance: TACROLIMUS
     Indication: Liver transplant
     Dosage: 1 MG ORAL??TAKE 2 CAPSULES BY MOUNTH IN THE MORNING AND 1 CAPSULE IN  THE EVENING AVOID GRAPEFRUIT.
     Route: 048
     Dates: start: 20220624
  2. TACROLIMUS [Suspect]
     Active Substance: TACROLIMUS
     Dosage: FREQUENCY : TWICE A DAY;?
     Route: 048

REACTIONS (1)
  - Nasopharyngitis [None]

NARRATIVE: CASE EVENT DATE: 20220831
